FAERS Safety Report 8296481-6 (Version None)
Quarter: 2012Q2

REPORT INFORMATION
  Report Type: 
  Country: None (occurrence: None)
  Receive Date: 20120418
  Receipt Date: 20120417
  Transmission Date: 20120825
  Serious: Yes (Other)
  Sender: FDA-Public Use
  Company Number: US-PFIZER INC-2012077755

PATIENT
  Sex: Female

DRUGS (3)
  1. LYRICA [Suspect]
     Indication: BONE PAIN
     Dosage: 150 MG, 2X/DAY
  2. LYRICA [Suspect]
     Indication: FIBROMYALGIA
     Dosage: 75 MG, 1X/DAY
  3. LYRICA [Suspect]
     Dosage: UNK

REACTIONS (24)
  - DISORIENTATION [None]
  - BLOOD PRESSURE ABNORMAL [None]
  - GASTRIC BYPASS [None]
  - FIBROMYALGIA [None]
  - ANAEMIA [None]
  - TREMOR [None]
  - FEELING HOT [None]
  - PRURITUS [None]
  - INFLUENZA LIKE ILLNESS [None]
  - MULTIPLE SCLEROSIS [None]
  - SPINAL COLUMN STENOSIS [None]
  - MEMORY IMPAIRMENT [None]
  - PAIN [None]
  - OSTEOPOROSIS [None]
  - GRIP STRENGTH DECREASED [None]
  - CONFUSIONAL STATE [None]
  - HIP ARTHROPLASTY [None]
  - ATONIC URINARY BLADDER [None]
  - SYSTEMIC LUPUS ERYTHEMATOSUS [None]
  - IRON DEFICIENCY [None]
  - OEDEMA [None]
  - MYALGIA [None]
  - HYPERSOMNIA [None]
  - DISTURBANCE IN ATTENTION [None]
